FAERS Safety Report 5390570-1 (Version None)
Quarter: 2007Q3

REPORT INFORMATION
  Report Type: 
  Country: None (occurrence: None)
  Receive Date: 20070718
  Receipt Date: 20070429
  Transmission Date: 20080115
  Serious: No
  Sender: FDA-Public Use
  Company Number: US-KINGPHARMUSA00001-K200700545

PATIENT

DRUGS (3)
  1. LEVOXYL [Suspect]
     Indication: HYPOTHYROIDISM
     Dosage: .05 MG, QD
     Dates: start: 20040101
  2. ATENOLOL [Concomitant]
     Dosage: 25 MG, QD
     Dates: start: 20050401, end: 20050501
  3. MULTIVITAMIN [Concomitant]

REACTIONS (4)
  - BLOOD PRESSURE FLUCTUATION [None]
  - EXERCISE TOLERANCE DECREASED [None]
  - FATIGUE [None]
  - HYPERTENSION [None]
